FAERS Safety Report 19271917 (Version 2)
Quarter: 2024Q1

REPORT INFORMATION
  Report Type: Spontaneous
  Country: US (occurrence: US)
  Receive Date: 20210519
  Receipt Date: 20240201
  Transmission Date: 20240409
  Serious: No
  Sender: FDA-Public Use
  Company Number: US-NOVEN PHARMACEUTICALS, INC.-2021US000107

PATIENT
  Sex: Male

DRUGS (2)
  1. DAYTRANA [Suspect]
     Active Substance: METHYLPHENIDATE
     Indication: Attention deficit hyperactivity disorder
     Dosage: 15 MG/9HR, UNK
     Route: 062
  2. DAYTRANA [Suspect]
     Active Substance: METHYLPHENIDATE
     Dosage: 10 MG/9HR, UNK
     Route: 062

REACTIONS (10)
  - Obsessive-compulsive disorder [Not Recovered/Not Resolved]
  - Stereotypy [Not Recovered/Not Resolved]
  - Blepharospasm [Not Recovered/Not Resolved]
  - Application site erosion [Unknown]
  - Application site irritation [Unknown]
  - Application site haemorrhage [Unknown]
  - Application site erythema [Unknown]
  - Application site scab [Unknown]
  - Dyskinesia [Not Recovered/Not Resolved]
  - Drug ineffective [Recovered/Resolved]
